FAERS Safety Report 4365878-9 (Version None)
Quarter: 2004Q2

REPORT INFORMATION
  Report Type: 
  Country: None (occurrence: None)
  Receive Date: 20040521
  Receipt Date: 20040506
  Transmission Date: 20050107
  Serious: Yes (Hospitalization)
  Sender: FDA-Public Use
  Company Number: 2004AP02352

PATIENT
  Age: 61 Year
  Sex: Female
  Weight: 40 kg

DRUGS (6)
  1. NAROPIN [Suspect]
     Indication: EPIDURAL ANAESTHESIA
     Dosage: 192 MG DAILY ED
     Route: 008
     Dates: start: 20020517, end: 20020520
  2. CARBOCAIN [Concomitant]
  3. ADONA [Concomitant]
  4. CEFMETAZON [Concomitant]
  5. AMINOFLUID [Concomitant]
  6. C-PARA [Concomitant]

REACTIONS (3)
  - MEDICATION ERROR [None]
  - NEUROGENIC BLADDER [None]
  - POLLAKIURIA [None]
